FAERS Safety Report 14952175 (Version 2)
Quarter: 2018Q4

REPORT INFORMATION
  Report Type: Spontaneous
  Country: AU (occurrence: AU)
  Receive Date: 20180530
  Receipt Date: 20181130
  Transmission Date: 20190204
  Serious: Yes (Other)
  Sender: FDA-Public Use
  Company Number: AU-SA-2018SA140616

PATIENT
  Sex: Male

DRUGS (3)
  1. APIDRA [Suspect]
     Active Substance: INSULIN GLULISINE
     Dosage: 5 U, BID
     Dates: start: 20180521
  2. APIDRA [Suspect]
     Active Substance: INSULIN GLULISINE
     Dosage: 5 U, TID
     Dates: start: 20180508
  3. LANTUS [Suspect]
     Active Substance: INSULIN GLARGINE
     Dosage: UNK

REACTIONS (5)
  - Dyspnoea [Not Recovered/Not Resolved]
  - Hyperhidrosis [Not Recovered/Not Resolved]
  - Injection site warmth [Not Recovered/Not Resolved]
  - Injection site bruising [Not Recovered/Not Resolved]
  - Blood glucose decreased [Not Recovered/Not Resolved]

NARRATIVE: CASE EVENT DATE: 201805
